FAERS Safety Report 15858891 (Version 2)
Quarter: 2019Q1

REPORT INFORMATION
  Report Type: Report from Study
  Country: CA (occurrence: CA)
  Receive Date: 20190123
  Receipt Date: 20190129
  Transmission Date: 20190417
  Serious: Yes (Hospitalization, Other)
  Sender: FDA-Public Use
  Company Number: CA-GLAXOSMITHKLINE-CA2018GSK199356

PATIENT
  Age: 31 Year
  Sex: Female

DRUGS (3)
  1. MEPOLIZUMAB [Suspect]
     Active Substance: MEPOLIZUMAB
     Dosage: 100 MG, Z, MONTHLY
     Route: 042
  2. MEPOLIZUMAB [Suspect]
     Active Substance: MEPOLIZUMAB
     Dosage: UNK
  3. MEPOLIZUMAB [Suspect]
     Active Substance: MEPOLIZUMAB
     Indication: ASTHMA
     Dosage: 100 MG, Z, MONTHLY
     Route: 042

REACTIONS (9)
  - Pyrexia [Unknown]
  - Oropharyngeal pain [Unknown]
  - Malaise [Unknown]
  - Bronchospasm [Unknown]
  - Pericarditis [Unknown]
  - Vasculitis [Unknown]
  - Product dose omission [Unknown]
  - Pneumonia [Not Recovered/Not Resolved]
  - Vital capacity abnormal [Not Recovered/Not Resolved]

NARRATIVE: CASE EVENT DATE: 20190102
